FAERS Safety Report 7026321-4 (Version None)
Quarter: 2010Q4

REPORT INFORMATION
  Report Type: 
  Country: None (occurrence: None)
  Receive Date: 20101004
  Receipt Date: 20100922
  Transmission Date: 20110411
  Serious: Yes (Hospitalization, Other)
  Sender: FDA-Public Use
  Company Number: US-PFIZER INC-2010101455

PATIENT
  Sex: Female
  Weight: 77.1 kg

DRUGS (11)
  1. GENOTROPIN [Suspect]
     Indication: HYPOPITUITARISM
     Dosage: UNK
     Dates: start: 20060101, end: 20100809
  2. LEVOTHYROXINE [Concomitant]
     Indication: HYPOTHYROIDISM
     Dosage: 50 UG, 1X/DAY
     Route: 048
  3. KLONOPIN [Concomitant]
     Indication: ANXIETY
     Dosage: 0.5MG (MORNING) + 1.5MG (NIGHT) DAILY
     Route: 048
  4. CALCIUM WITH VITAMIN D [Concomitant]
     Dosage: 600 MG, UNK
     Route: 048
  5. NARDIL [Concomitant]
     Dosage: 15 MG, 1X/DAY
     Route: 048
     Dates: start: 20100810
  6. OPTIVAR [Concomitant]
     Dosage: UNK
     Route: 047
  7. POLYETHYLENE GLYCOL [Concomitant]
     Indication: CONSTIPATION
     Dosage: UNK
     Route: 048
  8. POTASSIUM [Concomitant]
     Dosage: 20 MEQ, 1X/DAY
     Route: 048
  9. CENTRUM [Concomitant]
     Dosage: 20MG ONE TABLET IN THE MORNING,HALF IN THE NOON
     Route: 048
  10. HYDROCODONE [Concomitant]
     Dosage: 30 MG, 2X/DAY
     Route: 048
  11. OMEPRAZOLE [Concomitant]
     Indication: GASTROOESOPHAGEAL REFLUX DISEASE
     Dosage: UNK
     Route: 048

REACTIONS (6)
  - ATRIAL FIBRILLATION [None]
  - BLOOD CHOLESTEROL INCREASED [None]
  - HEADACHE [None]
  - HYPERTENSION [None]
  - THROMBOSIS [None]
  - TYPE 2 DIABETES MELLITUS [None]
